FAERS Safety Report 5851439-9 (Version None)
Quarter: 2008Q3

REPORT INFORMATION
  Report Type: 
  Country: None (occurrence: None)
  Receive Date: 20080820
  Receipt Date: 20080813
  Transmission Date: 20090109
  Serious: Yes (Hospitalization)
  Sender: FDA-Public Use
  Company Number: US-BRISTOL-MYERS SQUIBB COMPANY-14300131

PATIENT
  Age: 62 Year
  Sex: Female
  Weight: 49 kg

DRUGS (3)
  1. ERBITUX [Suspect]
     Indication: OROPHARYNGEAL CANCER STAGE UNSPECIFIED
     Dosage: WEEKS 1-7 250 MG/M2
     Route: 042
     Dates: start: 20080730
  2. CISPLATIN [Suspect]
     Indication: OROPHARYNGEAL CANCER STAGE UNSPECIFIED
     Dosage: ADMINISTERED ON DAY 1+ 22
     Route: 042
     Dates: start: 20080730
  3. RADIATION THERAPY [Suspect]
     Indication: OROPHARYNGEAL CANCER STAGE UNSPECIFIED
     Dosage: 1 DOSAGE FORM =IMRT OF 35 FRACTIONS OVER 5 WEEKS; 5600 CGY TOTAL AS OF 08-AUG-2008.
     Dates: start: 20080730

REACTIONS (1)
  - FEBRILE NEUTROPENIA [None]
